FAERS Safety Report 6161805-2 (Version None)
Quarter: 2009Q2

REPORT INFORMATION
  Report Type: 
  Country: None (occurrence: None)
  Receive Date: 20090421
  Receipt Date: 20090414
  Transmission Date: 20091009
  Serious: Yes (Other)
  Sender: FDA-Public Use
  Company Number: FR-ROCHE-627190

PATIENT
  Age: 31 Year
  Sex: Female
  Weight: 80 kg

DRUGS (2)
  1. ROACCUTANE [Suspect]
     Indication: ACNE
     Dosage: PATIENT RECIVED 2 TABLETS OF 20 MG AND 1TABLETS 5 MG.
     Route: 048
  2. ROACCUTANE [Suspect]
     Dosage: FREQUENCY REPORTED AS 'QD' AND THE PATIENT RECEIVED 2 TABLETS OF 40 MG AND 1 TABLET OF 5 MG.
     Route: 048
     Dates: start: 20090222, end: 20090313

REACTIONS (3)
  - DIABETES MELLITUS [None]
  - HYPERGLYCAEMIA [None]
  - ILL-DEFINED DISORDER [None]
